FAERS Safety Report 19930028 (Version 1)
Quarter: 2021Q4

REPORT INFORMATION
  Report Type: Spontaneous
  Country: CN (occurrence: CN)
  Receive Date: 20211007
  Receipt Date: 20211007
  Transmission Date: 20220303
  Serious: Yes (Hospitalization, Other)
  Sender: FDA-Public Use
  Company Number: CN-INGENUS PHARMACEUTICALS, LLC-2021INF000127

PATIENT
  Age: 64 Year
  Sex: Female

DRUGS (2)
  1. CYCLOPHOSPHAMIDE [Suspect]
     Active Substance: CYCLOPHOSPHAMIDE
     Indication: Nephrotic syndrome
     Dosage: UNK
     Route: 065
  2. CYCLOPHOSPHAMIDE [Suspect]
     Active Substance: CYCLOPHOSPHAMIDE
     Indication: Glomerulonephritis membranous

REACTIONS (3)
  - Brain abscess [Recovered/Resolved]
  - Listeriosis [Recovered/Resolved]
  - Product use in unapproved indication [Unknown]
